FAERS Safety Report 4602266-1 (Version None)
Quarter: 2005Q1

REPORT INFORMATION
  Report Type: 
  Country: None (occurrence: None)
  Receive Date: 20050215
  Receipt Date: 20041201
  Transmission Date: 20050727
  Serious: Yes (Other)
  Sender: FDA-Public Use
  Company Number: 381235

PATIENT
  Age: 54 Year
  Sex: Male
  Weight: 76.2 kg

DRUGS (3)
  1. PEGASYS [Suspect]
     Indication: HEPATITIS C VIRUS
     Dosage: 90 MCG 1 PER WEEK SUBCUTANEOUS
     Route: 058
     Dates: start: 20040507, end: 20040917
  2. COPEGUS [Suspect]
     Indication: HEPATITIS C VIRUS
     Dosage: 600 MG DAILY ORAL
     Route: 048
     Dates: start: 20040815, end: 20040918
  3. LOTREL (AMLODIPINE BESYLATE/BENAZEPRIL HYDROCHLORIDE) [Concomitant]

REACTIONS (20)
  - ABDOMINAL DISTENSION [None]
  - AMNESIA [None]
  - BRUXISM [None]
  - DECREASED APPETITE [None]
  - DEPRESSION [None]
  - DISORIENTATION [None]
  - FATIGUE [None]
  - HEADACHE [None]
  - HEPATOCELLULAR DAMAGE [None]
  - HYPERSOMNIA [None]
  - INSOMNIA [None]
  - MEMORY IMPAIRMENT [None]
  - NAUSEA [None]
  - PAIN [None]
  - PSYCHOTIC DISORDER [None]
  - SCAR [None]
  - TOOTH DISORDER [None]
  - VIRAL LOAD INCREASED [None]
  - VISION BLURRED [None]
  - WEIGHT INCREASED [None]
